FAERS Safety Report 21271886 (Version 9)
Quarter: 2024Q3

REPORT INFORMATION
  Report Type: Report from Study
  Country: IL (occurrence: IL)
  Receive Date: 20220830
  Receipt Date: 20240809
  Transmission Date: 20241017
  Serious: Yes (Hospitalization)
  Sender: ABBVIE
  Company Number: IL-ABBVIE-22K-082-4518385-00

PATIENT
  Age: 78 Year
  Sex: Male

DRUGS (30)
  1. VENETOCLAX [Suspect]
     Active Substance: VENETOCLAX
     Indication: Chronic lymphocytic leukaemia
     Dosage: 20 MILLIGRAM
     Route: 048
     Dates: start: 20210510, end: 20210518
  2. VENETOCLAX [Suspect]
     Active Substance: VENETOCLAX
     Indication: Chronic lymphocytic leukaemia
     Dosage: 50 MILLIGRAM
     Route: 048
     Dates: start: 20210519, end: 20210525
  3. VENETOCLAX [Suspect]
     Active Substance: VENETOCLAX
     Indication: Chronic lymphocytic leukaemia
     Dosage: 100 MILLIGRAM
     Route: 048
     Dates: start: 20210526, end: 20210601
  4. VENETOCLAX [Suspect]
     Active Substance: VENETOCLAX
     Indication: Chronic lymphocytic leukaemia
     Dosage: 200 MILLIGRAM
     Route: 048
     Dates: start: 20210602, end: 20210608
  5. VENETOCLAX [Suspect]
     Active Substance: VENETOCLAX
     Indication: Chronic lymphocytic leukaemia
     Dosage: INTERRUPTION COVID-19 INFECTION
     Route: 048
     Dates: start: 20210609, end: 20220217
  6. VENETOCLAX [Suspect]
     Active Substance: VENETOCLAX
     Indication: Chronic lymphocytic leukaemia
     Dosage: INTERRUPTION - ADVERSE EVENT
     Route: 048
     Dates: start: 20220615, end: 20220910
  7. VENETOCLAX [Suspect]
     Active Substance: VENETOCLAX
     Indication: Chronic lymphocytic leukaemia
     Dosage: 300 MILLIGRAM
     Route: 048
     Dates: start: 20221221
  8. RITUXIMAB [Suspect]
     Active Substance: RITUXIMAB
     Indication: B-cell depletion therapy
     Route: 065
     Dates: start: 20211110, end: 20211110
  9. RITUXIMAB [Suspect]
     Active Substance: RITUXIMAB
     Indication: B-cell depletion therapy
     Route: 065
     Dates: start: 20211011, end: 20211011
  10. RITUXIMAB [Suspect]
     Active Substance: RITUXIMAB
     Indication: B-cell depletion therapy
     Route: 065
     Dates: start: 20210811, end: 20210811
  11. RITUXIMAB [Suspect]
     Active Substance: RITUXIMAB
     Indication: B-cell depletion therapy
     Route: 065
     Dates: start: 20210909, end: 20210909
  12. RITUXIMAB [Suspect]
     Active Substance: RITUXIMAB
     Indication: B-cell depletion therapy
     Route: 065
     Dates: start: 20210714, end: 20210714
  13. AMLODIPINE BESYLATE [Concomitant]
     Active Substance: AMLODIPINE BESYLATE
     Indication: Blood pressure management
     Dates: start: 20210421, end: 20220331
  14. BISOPROLOL FUMARATE [Concomitant]
     Active Substance: BISOPROLOL FUMARATE
     Indication: Coronary artery disease
     Dates: start: 20210421
  15. Cartia [Concomitant]
     Indication: Anticoagulant therapy
     Dates: start: 20210421
  16. CILAZAPRIL ANHYDROUS [Concomitant]
     Active Substance: CILAZAPRIL ANHYDROUS
     Indication: Hypertension
     Dates: start: 20210421, end: 20220331
  17. TAMSULOSIN HYDROCHLORIDE [Concomitant]
     Active Substance: TAMSULOSIN HYDROCHLORIDE
     Indication: Benign prostatic hyperplasia
     Dates: start: 20210421
  18. ZOVIRAX [Concomitant]
     Active Substance: ACYCLOVIR
     Indication: Antiviral treatment
     Dates: start: 20210421
  19. ACETAMINOPHEN [Concomitant]
     Active Substance: ACETAMINOPHEN
     Indication: Pain management
     Dates: start: 20210616, end: 20210616
  20. ALLOPURINOL [Concomitant]
     Active Substance: ALLOPURINOL
     Indication: Tumour lysis syndrome
     Dates: start: 20210616, end: 20210616
  21. Pravalip [Concomitant]
     Indication: Hypercholesterolaemia
     Dates: start: 20210421
  22. Abrol [Concomitant]
     Indication: Pain management
     Dates: start: 20210616, end: 20210616
  23. METFORMIN HYDROCHLORIDE [Concomitant]
     Active Substance: METFORMIN HYDROCHLORIDE
     Indication: Diabetes mellitus
     Dates: start: 20210421
  24. NEXIUM [Concomitant]
     Active Substance: ESOMEPRAZOLE MAGNESIUM
     Indication: Inflammation
     Dates: start: 20220331, end: 20220430
  25. CALCULUS [Concomitant]
     Indication: Renal lithiasis prophylaxis
     Dates: start: 20220331
  26. MAGNOX [Concomitant]
     Indication: Mineral supplementation
     Dates: start: 20220331
  27. JARDIANCE [Concomitant]
     Active Substance: EMPAGLIFLOZIN
     Indication: Type 2 diabetes mellitus
     Dates: start: 20210421
  28. JARDIANCE [Concomitant]
     Active Substance: EMPAGLIFLOZIN
     Indication: Type 2 diabetes mellitus
     Dates: start: 20210421
  29. PROMETHAZINE [Concomitant]
     Active Substance: PROMETHAZINE HYDROCHLORIDE
     Indication: Antiallergic therapy
     Dates: start: 20210616, end: 20210616
  30. HUMAN IMMUNOGLOBULIN G [Concomitant]
     Active Substance: HUMAN IMMUNOGLOBULIN G
     Indication: Immunodeficiency
     Dosage: 1
     Route: 042
     Dates: start: 20220912, end: 20220912

REACTIONS (19)
  - COVID-19 [Recovered/Resolved]
  - Asthenia [Recovered/Resolved]
  - COVID-19 [Recovered/Resolved]
  - Productive cough [Recovered/Resolved]
  - Pyrexia [Recovered/Resolved]
  - Diarrhoea [Recovered/Resolved]
  - Asthenia [Recovered/Resolved]
  - Dizziness [Recovered/Resolved]
  - COVID-19 [Recovered/Resolved]
  - Dyspnoea [Recovered/Resolved]
  - Pyrexia [Recovered/Resolved]
  - Sinus bradycardia [Recovered/Resolved]
  - Asthenia [Recovered/Resolved]
  - Pyrexia [Recovered/Resolved]
  - COVID-19 [Recovered/Resolved]
  - Tinea versicolour [Recovered/Resolved]
  - Pyrexia [Recovered/Resolved]
  - COVID-19 [Recovered/Resolved]
  - Tinea versicolour [Recovered/Resolved]

NARRATIVE: CASE EVENT DATE: 20220217
